FAERS Safety Report 24840747 (Version 1)
Quarter: 2025Q1

REPORT INFORMATION
  Report Type: Spontaneous
  Country: CN (occurrence: CN)
  Receive Date: 20250114
  Receipt Date: 20250114
  Transmission Date: 20250409
  Serious: Yes (Other)
  Sender: PFIZER
  Company Number: CN-PFIZER INC-PV202500003385

PATIENT
  Age: 16 Month
  Sex: Female
  Weight: 10.3 kg

DRUGS (2)
  1. CYTARABINE [Suspect]
     Active Substance: CYTARABINE
     Indication: Langerhans^ cell histiocytosis
     Dosage: 0.034 G, 1X/DAY (PUMP INJECTION)
     Route: 042
     Dates: start: 20241230, end: 20250102
  2. MERCAPTOPURINE [Suspect]
     Active Substance: MERCAPTOPURINE
     Indication: Langerhans^ cell histiocytosis
     Dosage: 12.5 MG, 1X/DAY
     Route: 048
     Dates: start: 20241230, end: 20250103

REACTIONS (3)
  - Infantile vomiting [Recovered/Resolved]
  - Nausea [Recovered/Resolved]
  - Off label use [Unknown]

NARRATIVE: CASE EVENT DATE: 20241230
